FAERS Safety Report 6379244-8 (Version None)
Quarter: 2009Q3

REPORT INFORMATION
  Report Type: 
  Country: None (occurrence: None)
  Receive Date: 20090923
  Receipt Date: 20090923
  Transmission Date: 20100115
  Serious: Yes (Hospitalization)
  Sender: FDA-Public Use
  Company Number: None

PATIENT
  Sex: Female
  Weight: 60.8 kg

DRUGS (16)
  1. METHADONE HYDROCHLORIDE [Suspect]
     Indication: PAIN
     Dosage: 20MG PO TID + 25MG PO QHS
     Route: 048
  2. ASPIRIN [Concomitant]
  3. VENLAFAXINE [Concomitant]
  4. CLONAZEPAM [Concomitant]
  5. LANSOPRAZOLE [Concomitant]
  6. BACLOFEN [Concomitant]
  7. PANCRELIPASE [Concomitant]
  8. HYDROXYZINE [Concomitant]
  9. ERGOCALCIFEROL [Concomitant]
  10. METHYLPHENIDATE HCL [Concomitant]
  11. ZOLPIDEM [Concomitant]
  12. LEVETIRACETAM [Concomitant]
  13. CELECOXIB [Concomitant]
  14. SULFAMETHOXAZOLE AND TRIMETHOPRIM [Concomitant]
  15. HYDROMORPHONE [Concomitant]
  16. PILOCARPINE HYDROCHLORIDE [Concomitant]

REACTIONS (14)
  - ANAEMIA [None]
  - BLOOD CULTURE POSITIVE [None]
  - CONVULSION [None]
  - CYANOSIS [None]
  - DEEP VEIN THROMBOSIS [None]
  - FAECAL INCONTINENCE [None]
  - FALL [None]
  - GASTRIC BYPASS [None]
  - HIP ARTHROPLASTY [None]
  - MALABSORPTION [None]
  - OXYGEN SATURATION DECREASED [None]
  - SOMNOLENCE [None]
  - STAPHYLOCOCCAL INFECTION [None]
  - UNRESPONSIVE TO STIMULI [None]
